FAERS Safety Report 25169940 (Version 2)
Quarter: 2025Q2

REPORT INFORMATION
  Report Type: Report from Study
  Country: EG (occurrence: EG)
  Receive Date: 20250407
  Receipt Date: 20250417
  Transmission Date: 20250717
  Serious: Yes (Other)
  Sender: BIOGEN
  Company Number: EG-BIOGEN-2024BI01290613

PATIENT
  Age: 31 Year
  Sex: Female
  Weight: 80 kg

DRUGS (4)
  1. TYSABRI [Suspect]
     Active Substance: NATALIZUMAB
     Indication: Multiple sclerosis
     Dosage: 300MG/15ML
     Route: 050
     Dates: start: 202401, end: 202412
  2. TYSABRI [Suspect]
     Active Substance: NATALIZUMAB
     Dosage: 300MG/15ML
     Route: 050
     Dates: start: 202401, end: 202411
  3. CALCIUM [Concomitant]
     Active Substance: CALCIUM
     Indication: Supplementation therapy
     Route: 050
     Dates: start: 202408, end: 20250216
  4. IRON [Concomitant]
     Active Substance: IRON
     Indication: Supplementation therapy
     Route: 050
     Dates: start: 202408, end: 20250216

REACTIONS (8)
  - Cervix dystocia [Recovered/Resolved]
  - Premature delivery [Recovered/Resolved]
  - Maternal exposure during pregnancy [Recovered/Resolved]
  - Anaemia [Not Recovered/Not Resolved]
  - Excessive maternal gestational weight gain [Recovered/Resolved]
  - Platelet count decreased [Not Recovered/Not Resolved]
  - Headache [Unknown]
  - Dizziness [Unknown]

NARRATIVE: CASE EVENT DATE: 20240501
